FAERS Safety Report 4808975-3 (Version None)
Quarter: 2005Q4

REPORT INFORMATION
  Report Type: 
  Country: None (occurrence: None)
  Receive Date: 20051025
  Receipt Date: 20051004
  Transmission Date: 20060501
  Serious: Yes (Other)
  Sender: FDA-Public Use
  Company Number: US-BRISTOL-MYERS SQUIBB COMPANY-13145826

PATIENT
  Age: 25 Year
  Sex: Female

DRUGS (11)
  1. CYCLOPHOSPHAMIDE [Suspect]
     Indication: LUPUS NEPHRITIS
     Dosage: DURING WEEK 22 OF PREGNANCY
     Route: 042
  2. METHYLPREDNISOLONE [Concomitant]
     Route: 042
  3. PREDNISONE [Concomitant]
  4. HYDROXYCHLOROQUINE SULFATE [Concomitant]
  5. ASPIRIN [Concomitant]
  6. AZATHIOPRINE [Concomitant]
     Dosage: DURING SECOND TRIMESTER
  7. LABETALOL HCL [Concomitant]
  8. FLUTICASONE [Concomitant]
  9. FUROSEMIDE [Concomitant]
  10. SALMETEROL [Concomitant]
  11. MESNA [Concomitant]
     Dosage: DURING WEEK 22 OF PREGNANCY
     Route: 042

REACTIONS (2)
  - ABORTION SPONTANEOUS [None]
  - INTRA-UTERINE DEATH [None]
